FAERS Safety Report 18866314 (Version 3)
Quarter: 2022Q1

REPORT INFORMATION
  Report Type: Report from Study
  Country: US (occurrence: US)
  Receive Date: 20210209
  Receipt Date: 20220326
  Transmission Date: 20220424
  Serious: Yes (Hospitalization, Other)
  Sender: FDA-Public Use
  Company Number: US-TAKEDA-2021TUS005375

PATIENT
  Age: 60 Year
  Sex: Male
  Weight: 82 kg

DRUGS (3)
  1. PENTASA [Suspect]
     Active Substance: MESALAMINE
     Indication: Crohn^s disease
     Dosage: 500 MILLIGRAM
     Route: 048
  2. PENTASA [Suspect]
     Active Substance: MESALAMINE
     Indication: Ulcer
     Dosage: 1000 MILLIGRAM, QID
     Route: 048
     Dates: start: 20201008
  3. PREVACID [Concomitant]
     Active Substance: LANSOPRAZOLE
     Indication: Dyspepsia
     Dosage: UNK
     Route: 065

REACTIONS (9)
  - Hospitalisation [Not Recovered/Not Resolved]
  - Illness [Unknown]
  - Abdominal pain upper [Unknown]
  - Decreased appetite [Unknown]
  - Bowel movement irregularity [Unknown]
  - Nausea [Unknown]
  - Pain [Recovering/Resolving]
  - Product availability issue [Unknown]
  - Inappropriate schedule of product administration [Unknown]

NARRATIVE: CASE EVENT DATE: 20220322
